FAERS Safety Report 6380247-8 (Version None)
Quarter: 2009Q3

REPORT INFORMATION
  Report Type: 
  Country: None (occurrence: None)
  Receive Date: 20090923
  Receipt Date: 20090928
  Transmission Date: 20100115
  Serious: Yes (Death, Other)
  Sender: FDA-Public Use
  Company Number: IND1-PL-2009-0028

PATIENT
  Age: 56 Year
  Sex: Male

DRUGS (3)
  1. INDOCIN [Suspect]
     Indication: PYREXIA
     Dosage: (75MG/BID) PER ORAL
     Route: 048
     Dates: start: 20090520
  2. NEXAVAR [Suspect]
     Indication: METASTATIC RENAL CELL CARCINOMA
     Dosage: (400MG/BID) PER ORAL
     Route: 048
     Dates: start: 20090529, end: 20090629
  3. KETOPROFEN [Suspect]
     Indication: PAIN
     Dosage: (100MG/BID) PER ORAL
     Route: 048
     Dates: start: 20090101

REACTIONS (3)
  - ANAEMIA [None]
  - GENERAL PHYSICAL HEALTH DETERIORATION [None]
  - PYREXIA [None]
